FAERS Safety Report 10307915 (Version 2)
Quarter: 2014Q3

REPORT INFORMATION
  Report Type: Spontaneous
  Country: US (occurrence: None)
  Receive Date: 20140711
  Receipt Date: 20140725
  Transmission Date: 20150326
  Serious: Yes (Hospitalization, Other)
  Sender: FDA-Public Use
  Company Number: US-H14001-14-00086

PATIENT
  Age: 57 Year
  Sex: Male
  Weight: 136.08 kg

DRUGS (2)
  1. BENICAR [Concomitant]
     Active Substance: OLMESARTAN MEDOXOMIL
  2. TESTOSTERONE ENANTHATE. [Suspect]
     Active Substance: TESTOSTERONE ENANTHATE
     Indication: BLOOD TESTOSTERONE DECREASED
     Dosage: 1.5 ML, 1 IN 2 WEEKS, INTRAMUSCULAR
     Route: 030
     Dates: start: 2004, end: 201406

REACTIONS (12)
  - Varicose vein [None]
  - Arthralgia [None]
  - Loss of consciousness [None]
  - Blood viscosity increased [None]
  - Pain [None]
  - Hyperaesthesia [None]
  - Cerebrovascular accident [None]
  - Platelet count increased [None]
  - Nipple swelling [None]
  - Red blood cell count increased [None]
  - Drug withdrawal syndrome [None]
  - Muscle spasms [None]

NARRATIVE: CASE EVENT DATE: 2014
